FAERS Safety Report 9060925 (Version 5)
Quarter: 2013Q1

REPORT INFORMATION
  Report Type: Spontaneous
  Country: TW (occurrence: TW)
  Receive Date: 20130213
  Receipt Date: 20130328
  Transmission Date: 20140127
  Serious: Yes (Other)
  Sender: FDA-Public Use
  Company Number: TW-AMGEN-TWNSP2013009185

PATIENT
  Age: 62 Year
  Sex: Male

DRUGS (4)
  1. ENBREL [Suspect]
     Indication: PSORIATIC ARTHROPATHY
     Dosage: 25 MG, 2X/WEEK
     Route: 058
     Dates: start: 20120517, end: 20121004
  2. ENBREL [Suspect]
     Dosage: 25 MG, 2X/DAY
     Route: 058
     Dates: start: 20130117, end: 20130129
  3. CYCLOSPORINE [Concomitant]
     Dosage: 200 MG, 1X/DAY
  4. CELEBREX [Concomitant]
     Dosage: 200 MG, 2X/DAY

REACTIONS (2)
  - Hepatic cancer [Not Recovered/Not Resolved]
  - Metastases to lung [Not Recovered/Not Resolved]
